FAERS Safety Report 5043422-0 (Version None)
Quarter: 2006Q2

REPORT INFORMATION
  Report Type: 
  Country: None (occurrence: None)
  Receive Date: 20060629
  Receipt Date: 20060615
  Transmission Date: 20061013
  Serious: Yes (Other)
  Sender: FDA-Public Use
  Company Number: 2006RR-02672

PATIENT
  Age: 78 Year
  Sex: Male

DRUGS (1)
  1. ENALAPRIL MALEATE [Suspect]
     Dates: start: 20030501

REACTIONS (7)
  - DRUG INEFFECTIVE [None]
  - PARAKERATOSIS [None]
  - PERIVASCULAR DERMATITIS [None]
  - PITYRIASIS ROSEA [None]
  - PRURITUS [None]
  - RASH MACULO-PAPULAR [None]
  - SKIN OEDEMA [None]
